FAERS Safety Report 5192763-5 (Version None)
Quarter: 2006Q4

REPORT INFORMATION
  Report Type: 
  Country: None (occurrence: None)
  Receive Date: 20061228
  Receipt Date: 20061215
  Transmission Date: 20070319
  Serious: Yes (Other)
  Sender: FDA-Public Use
  Company Number: US-PFIZER INC-2006154473

PATIENT
  Sex: Male

DRUGS (7)
  1. LYRICA [Suspect]
     Indication: NEURALGIA
  2. CORTISONE ACETATE [Suspect]
     Indication: HYPERSENSITIVITY
  3. CORTISONE ACETATE [Suspect]
     Indication: ERYTHEMA
  4. VOLTAREN [Suspect]
  5. OXYCONTIN [Concomitant]
  6. LORAZEPAM [Concomitant]
  7. DURAGESIC-100 [Concomitant]

REACTIONS (15)
  - CONSTIPATION [None]
  - DISTURBANCE IN ATTENTION [None]
  - DIZZINESS [None]
  - DRUG INEFFECTIVE [None]
  - DRY MOUTH [None]
  - ERYTHEMA [None]
  - EYELID OEDEMA [None]
  - GASTRITIS [None]
  - MUSCULAR WEAKNESS [None]
  - MYALGIA [None]
  - OEDEMA [None]
  - PRURITUS [None]
  - SKIN LESION [None]
  - VISION BLURRED [None]
  - WEIGHT INCREASED [None]
